FAERS Safety Report 10493051 (Version 2)
Quarter: 2014Q4

REPORT INFORMATION
  Report Type: Spontaneous
  Country: US (occurrence: US)
  Receive Date: 20141002
  Receipt Date: 20141015
  Transmission Date: 20150528
  Serious: Yes (Hospitalization)
  Sender: FDA-Public Use
  Company Number: US-GLAXOSMITHKLINE-A1078496A

PATIENT
  Age: 73 Year
  Sex: Female

DRUGS (14)
  1. CITALOPRAM [Suspect]
     Active Substance: CITALOPRAM HYDROBROMIDE
     Indication: PRODUCT USED FOR UNKNOWN INDICATION
     Route: 065
  2. SINGULAIR [Concomitant]
     Active Substance: MONTELUKAST SODIUM
  3. ASPIRIN. [Concomitant]
     Active Substance: ASPIRIN
  4. PREDNISONE. [Suspect]
     Active Substance: PREDNISONE
     Indication: PRODUCT USED FOR UNKNOWN INDICATION
     Route: 065
  5. PROAIR HFA [Concomitant]
     Active Substance: ALBUTEROL SULFATE
  6. POTASSIUM [Concomitant]
     Active Substance: POTASSIUM
  7. CARDIZEM [Concomitant]
     Active Substance: DILTIAZEM HYDROCHLORIDE
  8. FUROSEMIDE. [Concomitant]
     Active Substance: FUROSEMIDE
  9. UNKNOWN [Concomitant]
     Active Substance: UNSPECIFIED INGREDIENT
     Dosage: UNK
  10. FISH OIL [Concomitant]
     Active Substance: FISH OIL
  11. ADVAIR HFA [Suspect]
     Active Substance: FLUTICASONE PROPIONATE\SALMETEROL XINAFOATE
     Indication: ASTHMA
     Dosage: 1 DF, BID
     Dates: start: 1986
  12. RISPERDAL [Concomitant]
     Active Substance: RISPERIDONE
  13. CALCIUM [Concomitant]
     Active Substance: CALCIUM
  14. TRAMADOL [Suspect]
     Active Substance: TRAMADOL
     Indication: PRODUCT USED FOR UNKNOWN INDICATION
     Route: 065

REACTIONS (14)
  - Rash [Unknown]
  - Malaise [Unknown]
  - Swelling [Unknown]
  - Nasopharyngitis [Recovering/Resolving]
  - Blood potassium decreased [Unknown]
  - Drug intolerance [Unknown]
  - Bronchitis [Recovering/Resolving]
  - Pruritus [Unknown]
  - Herpes zoster [Recovering/Resolving]
  - Pulmonary function test decreased [Recovering/Resolving]
  - Drug ineffective [Unknown]
  - Dizziness [Unknown]
  - Drug hypersensitivity [Unknown]
  - Ill-defined disorder [Recovering/Resolving]

NARRATIVE: CASE EVENT DATE: 201401
